FAERS Safety Report 22025576 (Version 1)
Quarter: 2023Q1

REPORT INFORMATION
  Report Type: Spontaneous
  Country: US (occurrence: None)
  Receive Date: 20230223
  Receipt Date: 20230223
  Transmission Date: 20230418
  Serious: No
  Sender: FDA-Public Use
  Company Number: US-ROCHE-3115954

PATIENT
  Age: 74 Year
  Sex: Male
  Weight: 129.39 kg

DRUGS (3)
  1. XOLAIR [Suspect]
     Active Substance: OMALIZUMAB
     Indication: Asthma
     Dosage: 300MG, EVERY 2 WEEKS (STRENGTH: 150MG/ML)
     Route: 058
     Dates: start: 202201
  2. XOLAIR [Suspect]
     Active Substance: OMALIZUMAB
  3. XOLAIR [Suspect]
     Active Substance: OMALIZUMAB

REACTIONS (6)
  - Underdose [Unknown]
  - Device defective [Unknown]
  - Device issue [Unknown]
  - No adverse event [Unknown]
  - Product dose omission issue [Unknown]
  - Needle issue [Unknown]

NARRATIVE: CASE EVENT DATE: 20220608
